FAERS Safety Report 6583438-6 (Version None)
Quarter: 2010Q1

REPORT INFORMATION
  Report Type: 
  Country: None (occurrence: None)
  Receive Date: 20100216
  Receipt Date: 20100202
  Transmission Date: 20100710
  Serious: Yes (Hospitalization, Other)
  Sender: FDA-Public Use
  Company Number: GB-MYLANLABS-2010S1001713

PATIENT
  Age: 64 Year
  Sex: Female

DRUGS (4)
  1. FELODIPINE [Suspect]
     Indication: HYPERTENSION
  2. LISINOPRIL [Suspect]
     Indication: HYPERTENSION
  3. ATENOLOL [Concomitant]
     Indication: HYPERTENSION
  4. BENDROFLUMETHIAZIDE [Concomitant]
     Indication: HYPERTENSION

REACTIONS (4)
  - BREAST CANCER [None]
  - DRUG INEFFECTIVE [None]
  - HYPERTENSION [None]
  - TELANGIECTASIA [None]
